FAERS Safety Report 5610461-8 (Version None)
Quarter: 2008Q1

REPORT INFORMATION
  Report Type: 
  Country: None (occurrence: None)
  Receive Date: 20080128
  Receipt Date: 20080116
  Transmission Date: 20080703
  Serious: Yes (Death)
  Sender: FDA-Public Use
  Company Number: DSU-2007-01026

PATIENT
  Age: 73 Year
  Sex: Female
  Weight: 52.6173 kg

DRUGS (8)
  1. AZOR [Suspect]
     Indication: HYPERTENSION
     Dosage: 5/20 MG (QD), PER ORAL
     Route: 048
     Dates: start: 20071217, end: 20071219
  2. EXFORGE (AMLODIPINE, VALSARTAN) (AMLODIPINE, VALSARTAN) [Concomitant]
  3. PLAVIX [Concomitant]
  4. LIPITOR [Concomitant]
  5. DILANTIN (PHENYTOIN) (PHENYTOIN) [Concomitant]
  6. LEXAPRO (ESCITALOPRAM OXALATE) (ESCITALOPRAM OXALATE) [Concomitant]
  7. CLONIDINE (CLONIDINE) (CLONIDINE) [Concomitant]
  8. TERAZOSIN (TERAZOSIN) (TERAZOSIN) [Concomitant]

REACTIONS (2)
  - CEREBROVASCULAR ACCIDENT [None]
  - MYOCARDIAL INFARCTION [None]
